FAERS Safety Report 16155370 (Version 4)
Quarter: 2019Q3

REPORT INFORMATION
  Report Type: Report from Study
  Country: None (occurrence: US)
  Receive Date: 20190403
  Receipt Date: 20190715
  Transmission Date: 20191004
  Serious: Yes (Hospitalization, Other)
  Sender: FDA-Public Use
  Company Number: US-ABBVIE-19K-163-2728877-00

PATIENT
  Age: 72 Year
  Sex: Female
  Weight: 79.45 kg

DRUGS (2)
  1. VENCLEXTA [Suspect]
     Active Substance: VENETOCLAX
     Indication: ACUTE MYELOID LEUKAEMIA
     Route: 048
     Dates: start: 201902, end: 201907
  2. DOXYCYCLINE. [Concomitant]
     Active Substance: DOXYCYCLINE
     Indication: CHEMOTHERAPY

REACTIONS (8)
  - Pyrexia [Recovered/Resolved]
  - Contrast media allergy [Unknown]
  - Nasopharyngitis [Recovered/Resolved]
  - Full blood count decreased [Unknown]
  - Drug intolerance [Unknown]
  - Intentional product use issue [Unknown]
  - Nail injury [Recovering/Resolving]
  - Weight decreased [Recovering/Resolving]

NARRATIVE: CASE EVENT DATE: 201902
